FAERS Safety Report 8236436-0 (Version None)
Quarter: 2012Q1

REPORT INFORMATION
  Report Type: 
  Country: None (occurrence: None)
  Receive Date: 20120327
  Receipt Date: 20120320
  Transmission Date: 20120608
  Serious: No
  Sender: FDA-Public Use
  Company Number: US-PFIZER INC-2012073564

PATIENT

DRUGS (1)
  1. NEURONTIN [Suspect]
     Dosage: 6 ML, 4X/DAY
     Route: 048

REACTIONS (1)
  - DIARRHOEA [None]
